FAERS Safety Report 22321596 (Version 2)
Quarter: 2023Q2

REPORT INFORMATION
  Report Type: Spontaneous
  Country: US (occurrence: US)
  Receive Date: 20230515
  Receipt Date: 20230518
  Transmission Date: 20230721
  Serious: No
  Sender: FDA-Public Use
  Company Number: US-JNJFOC-20230512330

PATIENT
  Age: 51 Year
  Sex: Female

DRUGS (5)
  1. TREMFYA [Suspect]
     Active Substance: GUSELKUMAB
     Indication: Psoriasis
     Route: 065
  2. TREMFYA [Suspect]
     Active Substance: GUSELKUMAB
     Dosage: SERIAL NUMBER: 141737054006
     Route: 065
     Dates: start: 20230502
  3. HYOSCYAMINE [Concomitant]
     Active Substance: HYOSCYAMINE
  4. FLEXERIL [Concomitant]
     Active Substance: CYCLOBENZAPRINE HYDROCHLORIDE
  5. NOVOLIN N [Concomitant]
     Active Substance: INSULIN HUMAN

REACTIONS (4)
  - Mental disorder [Unknown]
  - Pruritus [Recovering/Resolving]
  - Psoriasis [Unknown]
  - Therapeutic product effect decreased [Unknown]

NARRATIVE: CASE EVENT DATE: 20230503
